FAERS Safety Report 20375306 (Version 3)
Quarter: 2022Q3

REPORT INFORMATION
  Report Type: Report from Study
  Country: US (occurrence: US)
  Receive Date: 20220125
  Receipt Date: 20220907
  Transmission Date: 20221026
  Serious: Yes (Other)
  Sender: FDA-Public Use
  Company Number: US-Ipsen Biopharmaceuticals, Inc.-2022-01304

PATIENT
  Age: 64 Year
  Sex: Female

DRUGS (3)
  1. SOMATULINE DEPOT [Suspect]
     Active Substance: LANREOTIDE ACETATE
     Indication: Metastatic carcinoid tumour
     Dosage: 120MG EVERY 4 WEEKS
     Route: 058
     Dates: start: 201607
  2. SOMATULINE DEPOT [Suspect]
     Active Substance: LANREOTIDE ACETATE
     Indication: Carcinoid tumour of the liver
  3. SOMATULINE DEPOT [Suspect]
     Active Substance: LANREOTIDE ACETATE
     Indication: Carcinoid tumour

REACTIONS (17)
  - Neoplasm malignant [Unknown]
  - Neoplasm [Unknown]
  - Bedridden [Unknown]
  - Wrist fracture [Unknown]
  - Fall [Unknown]
  - Flushing [Unknown]
  - Hyperhidrosis [Unknown]
  - Feeling cold [Unknown]
  - Injection site nodule [Unknown]
  - Costovertebral angle tenderness [Not Recovered/Not Resolved]
  - Lethargy [Not Recovered/Not Resolved]
  - Injection site pain [Unknown]
  - Back pain [Unknown]
  - Arthritis [Unknown]
  - Intervertebral disc protrusion [Unknown]
  - Alopecia [Unknown]
  - Off label use [Unknown]

NARRATIVE: CASE EVENT DATE: 20220101
